FAERS Safety Report 5281998-9 (Version None)
Quarter: 2007Q1

REPORT INFORMATION
  Report Type: 
  Country: None (occurrence: None)
  Receive Date: 20070330
  Receipt Date: 20070323
  Transmission Date: 20070707
  Serious: Yes (Life-Threatening, Hospitalization)
  Sender: FDA-Public Use
  Company Number: LB-ELI_LILLY_AND_COMPANY-LB200703005177

PATIENT
  Age: 65 Year
  Sex: Female
  Weight: 63 kg

DRUGS (8)
  1. GEMCITABINE HCL [Suspect]
     Indication: NON-SMALL CELL LUNG CANCER
     Dosage: 1600 MG, UNK
     Route: 042
     Dates: start: 20070309, end: 20070316
  2. MOTILIUM [Concomitant]
     Indication: NAUSEA
     Dosage: 10 MG, UNKNOWN
  3. PRIMPERAN                               /SCH/ [Concomitant]
     Indication: NAUSEA
     Dosage: 2 D/F, DAILY (1/D)
  4. EUTHYROX [Concomitant]
     Indication: GOITRE
     Dosage: 125 UG, DAILY (1/D)
  5. RYTHMOL [Concomitant]
     Indication: ATRIAL FIBRILLATION
  6. NAVOBAN [Concomitant]
     Route: 042
  7. CARBOPLATIN [Concomitant]
     Dosage: 450 MG, ON DAY ONE OF GEMCITABINE ADMIN
     Dates: start: 20070309
  8. ASPIRIN [Concomitant]

REACTIONS (4)
  - ANAPHYLACTIC SHOCK [None]
  - BRONCHOSPASM [None]
  - PANCYTOPENIA [None]
  - RASH ERYTHEMATOUS [None]
